FAERS Safety Report 8520617-2 (Version None)
Quarter: 2012Q3

REPORT INFORMATION
  Report Type: 
  Country: None (occurrence: None)
  Receive Date: 20120719
  Receipt Date: 20120706
  Transmission Date: 20120928
  Serious: Yes (Hospitalization)
  Sender: FDA-Public Use
  Company Number: AU-FRI-1000029481

PATIENT
  Sex: Female
  Weight: 65 kg

DRUGS (4)
  1. LORAZEPAM [Concomitant]
     Indication: PANIC DISORDER
  2. LEXAPRO [Suspect]
     Indication: ANXIETY DISORDER
     Dosage: PRESCRIBED OVERDOSE: 50 MG DAILY
     Route: 048
  3. OXAZEPAM [Concomitant]
     Indication: PANIC DISORDER
  4. MIRTAZAPINE [Concomitant]
     Indication: PANIC DISORDER

REACTIONS (2)
  - EPISTAXIS [None]
  - OVERDOSE [None]
